FAERS Safety Report 24238519 (Version 4)
Quarter: 2024Q4

REPORT INFORMATION
  Report Type: Report from Study
  Country: JP (occurrence: JP)
  Receive Date: 20240822
  Receipt Date: 20241218
  Transmission Date: 20250115
  Serious: Yes (Life-Threatening, Hospitalization)
  Sender: ABBVIE
  Company Number: JP-ABBVIE-5888393

PATIENT
  Age: 77 Year
  Sex: Female
  Weight: 65 kg

DRUGS (8)
  1. RINVOQ [Suspect]
     Active Substance: UPADACITINIB
     Indication: Ankylosing spondylitis
     Dosage: FORM STRENGTH : 15 MG
     Route: 048
     Dates: start: 20230301, end: 20230530
  2. RINVOQ [Suspect]
     Active Substance: UPADACITINIB
     Indication: Ankylosing spondylitis
     Dosage: FORM STRENGTH : 15 MG
     Route: 048
     Dates: start: 20230531, end: 20240820
  3. BAZEDOXIFENE ACETATE [Concomitant]
     Active Substance: BAZEDOXIFENE ACETATE
     Indication: Osteoporosis
     Dosage: 20 MILLIGRAM
     Route: 048
     Dates: start: 20210622
  4. AMLODIPINE BESYLATE [Concomitant]
     Active Substance: AMLODIPINE BESYLATE
     Indication: Hypertension
     Dosage: 5 MILLIGRAM
     Route: 048
  5. ATORVASTATIN CALCIUM [Concomitant]
     Active Substance: ATORVASTATIN CALCIUM
     Indication: Hyperlipidaemia
     Dosage: HYDRATE
     Route: 048
  6. CELECOXIB [Concomitant]
     Active Substance: CELECOXIB
     Indication: Ankylosing spondylitis
     Dosage: 200 MILLIGRAM
     Route: 048
     Dates: start: 20210622
  7. TELMISARTAN [Concomitant]
     Active Substance: TELMISARTAN
     Indication: Hypertension
     Dosage: 80 MILLIGRAM
     Route: 048
  8. METHOTREXATE [Concomitant]
     Active Substance: METHOTREXATE
     Indication: Ankylosing spondylitis
     Dosage: 4 MG
     Route: 048
     Dates: start: 20211026, end: 20240820

REACTIONS (3)
  - Pancreatic carcinoma [Not Recovered/Not Resolved]
  - Lung neoplasm malignant [Not Recovered/Not Resolved]
  - Cholangitis [Not Recovered/Not Resolved]

NARRATIVE: CASE EVENT DATE: 20240730
